FAERS Safety Report 25797221 (Version 1)
Quarter: 2025Q3

REPORT INFORMATION
  Report Type: Spontaneous
  Country: BR (occurrence: BR)
  Receive Date: 20250912
  Receipt Date: 20250912
  Transmission Date: 20251020
  Serious: Yes (Disabling, Other)
  Sender: NOVO NORDISK
  Company Number: BR-NOVOPROD-1517598

PATIENT
  Age: 93 Year
  Sex: Male

DRUGS (1)
  1. NOVOLIN N [Suspect]
     Active Substance: INSULIN HUMAN
     Indication: Product used for unknown indication
     Dosage: 40 IU, QD(22 UNITS IN MORNING AND 18 UNITS AT NIGHT)
     Dates: start: 2007

REACTIONS (2)
  - Deafness [Not Recovered/Not Resolved]
  - Visual impairment [Unknown]
